FAERS Safety Report 6945419-X (Version None)
Quarter: 2010Q3

REPORT INFORMATION
  Report Type: 
  Country: None (occurrence: None)
  Receive Date: 20100827
  Receipt Date: 20100821
  Transmission Date: 20110219
  Serious: Yes (Hospitalization)
  Sender: FDA-Public Use
  Company Number: JP-ROCHE-706179

PATIENT
  Sex: Female
  Weight: 47 kg

DRUGS (16)
  1. TOCILIZUMAB [Suspect]
     Indication: RHEUMATOID ARTHRITIS
     Route: 041
     Dates: start: 20081004, end: 20081004
  2. TOCILIZUMAB [Suspect]
     Route: 041
     Dates: start: 20081101, end: 20081101
  3. TOCILIZUMAB [Suspect]
     Route: 041
     Dates: start: 20081213, end: 20081213
  4. TOCILIZUMAB [Suspect]
     Route: 041
     Dates: start: 20090110, end: 20090110
  5. TOCILIZUMAB [Suspect]
     Route: 041
     Dates: start: 20090214, end: 20090214
  6. TOCILIZUMAB [Suspect]
     Route: 041
     Dates: start: 20090314, end: 20100101
  7. TOCILIZUMAB [Suspect]
     Route: 041
     Dates: start: 20100206, end: 20100206
  8. TOCILIZUMAB [Suspect]
     Route: 041
     Dates: start: 20100313, end: 20100313
  9. TOCILIZUMAB [Suspect]
     Route: 041
     Dates: start: 20100410, end: 20100410
  10. SELBEX [Concomitant]
     Dosage: FORM: PERORAL AGENT.
     Route: 048
  11. JUVELA N [Concomitant]
     Route: 048
  12. BIOFERMIN [Concomitant]
     Route: 048
  13. LOXONIN [Concomitant]
     Route: 048
     Dates: start: 20100313
  14. MUCOSTA [Concomitant]
     Route: 048
     Dates: start: 20100313
  15. LIPITOR [Concomitant]
     Route: 048
     Dates: start: 20100410
  16. MYCOSPOR [Concomitant]
     Route: 061
     Dates: start: 20100410

REACTIONS (1)
  - ARTHRITIS BACTERIAL [None]
